FAERS Safety Report 10984873 (Version 2)
Quarter: 2015Q2

REPORT INFORMATION
  Report Type: Spontaneous
  Country: US (occurrence: US)
  Receive Date: 20150403
  Receipt Date: 20150525
  Transmission Date: 20150821
  Serious: No
  Sender: FDA-Public Use
  Company Number: US-JNJFOC-20130913602

PATIENT
  Sex: Male
  Weight: 93.9 kg

DRUGS (5)
  1. PHENOBARBITAL. [Concomitant]
     Active Substance: PHENOBARBITAL
     Indication: SEIZURE
     Dosage: SIX YEARS AGO, 2 TABLETS TWICE DAILY
     Route: 065
     Dates: start: 2007
  2. IMODIUM A-D [Suspect]
     Active Substance: LOPERAMIDE HYDROCHLORIDE
     Route: 048
  3. KEPPRA [Concomitant]
     Active Substance: LEVETIRACETAM
     Indication: SEIZURE
     Dosage: 5-6 YEARS AGO, 2 TABLETS TWICE DAILY
     Route: 065
  4. IMODIUM A-D [Suspect]
     Active Substance: LOPERAMIDE HYDROCHLORIDE
     Indication: DIARRHOEA
     Dosage: 2 TABLETS AND THEN 1 TABLET
     Route: 048
     Dates: start: 20130922
  5. CARBATROL [Concomitant]
     Active Substance: CARBAMAZEPINE
     Indication: SEIZURE
     Dosage: SINCE 2-3 YEARS AGO, 2 CAPS TWICE DAILY
     Route: 065

REACTIONS (2)
  - Drug ineffective [Unknown]
  - Expired product administered [Unknown]
